FAERS Safety Report 5594100-0 (Version None)
Quarter: 2008Q1

REPORT INFORMATION
  Report Type: 
  Country: None (occurrence: None)
  Receive Date: 20080115
  Receipt Date: 20080109
  Transmission Date: 20080703
  Serious: Yes (Hospitalization)
  Sender: FDA-Public Use
  Company Number: 2007SP022534

PATIENT
  Age: 38 Year
  Sex: Female
  Weight: 58.9676 kg

DRUGS (10)
  1. PEG-INTRON [Suspect]
     Indication: HEPATITIS C
     Dosage: SC
     Route: 058
     Dates: start: 20071029
  2. REBETOL [Suspect]
     Indication: HEPATITIS C
     Dosage: PO
     Route: 048
     Dates: start: 20071023
  3. PAXIL (CON.) [Concomitant]
  4. BUSPAR (CON.) [Concomitant]
  5. TRAMADOL (CON.) [Concomitant]
  6. VICODIN (CON.) [Concomitant]
  7. FLEXEREIL /00428402/ (CON.) [Concomitant]
  8. ALBUTEROL (CON.) [Concomitant]
  9. ADVAIR (CON.) [Concomitant]
  10. VALTREX (CON.) [Concomitant]

REACTIONS (11)
  - AFFECTIVE DISORDER [None]
  - ASPARTATE AMINOTRANSFERASE INCREASED [None]
  - BIPOLAR DISORDER [None]
  - BIPOLAR I DISORDER [None]
  - BLOOD ALKALINE PHOSPHATASE INCREASED [None]
  - HALLUCINATIONS, MIXED [None]
  - INFLUENZA LIKE ILLNESS [None]
  - PAIN [None]
  - PSYCHOTIC DISORDER [None]
  - SCHIZOPHRENIA [None]
  - VISUAL DISTURBANCE [None]
